FAERS Safety Report 4291241-5 (Version None)
Quarter: 2004Q1

REPORT INFORMATION
  Report Type: 
  Country: None (occurrence: None)
  Receive Date: 20040211
  Receipt Date: 20031119
  Transmission Date: 20041129
  Serious: No
  Sender: FDA-Public Use
  Company Number: US-GLAXOSMITHKLINE-A0440370A

PATIENT
  Age: 44 Year
  Sex: Male

DRUGS (2)
  1. PAXIL [Suspect]
     Indication: POST-TRAUMATIC STRESS DISORDER
     Dosage: 60MG PER DAY
     Route: 048
     Dates: start: 20000101
  2. NONE [Concomitant]

REACTIONS (3)
  - DISORIENTATION [None]
  - HYPERTENSION [None]
  - PARAESTHESIA [None]
